FAERS Safety Report 10152767 (Version 2)
Quarter: 2014Q3

REPORT INFORMATION
  Report Type: Spontaneous
  Country: CA (occurrence: CA)
  Receive Date: 20140505
  Receipt Date: 20140730
  Transmission Date: 20150326
  Serious: Yes (Other)
  Sender: FDA-Public Use
  Company Number: CA-PFIZER INC-2014121813

PATIENT
  Age: 59 Year
  Sex: Male
  Weight: 80.27 kg

DRUGS (3)
  1. CEPHALEXIN. [Concomitant]
     Active Substance: CEPHALEXIN
     Dosage: UNK
  2. TECTA [Suspect]
     Active Substance: PANTOPRAZOLE MAGNESIUM
     Indication: GASTROOESOPHAGEAL REFLUX DISEASE
     Dosage: 40 MG, 1X/DAY
     Route: 048
     Dates: start: 2013
  3. TECTA [Suspect]
     Active Substance: PANTOPRAZOLE MAGNESIUM
     Dosage: 80 MG, 1X/DAY
     Route: 048
     Dates: start: 201303

REACTIONS (7)
  - Dizziness postural [Unknown]
  - Fatigue [Unknown]
  - Diarrhoea [Unknown]
  - Rash pruritic [Unknown]
  - Dysphagia [Unknown]
  - Faeces discoloured [Unknown]
  - Vision blurred [Unknown]

NARRATIVE: CASE EVENT DATE: 201303
